FAERS Safety Report 9764228 (Version 4)
Quarter: 2014Q1

REPORT INFORMATION
  Report Type: Spontaneous
  Country: JP (occurrence: JP)
  Receive Date: 20131216
  Receipt Date: 20140226
  Transmission Date: 20141002
  Serious: Yes (Hospitalization, Other)
  Sender: FDA-Public Use
  Company Number: JP-PFIZER INC-2013352583

PATIENT
  Age: 73 Year
  Sex: Male
  Weight: 71 kg

DRUGS (5)
  1. ZITHROMAC [Suspect]
     Indication: PNEUMONIA PNEUMOCOCCAL
     Dosage: 500 MG, 1X/DAY
     Route: 048
     Dates: start: 20131125, end: 20131127
  2. SISAAL [Suspect]
     Indication: PNEUMONIA PNEUMOCOCCAL
     Dosage: UNK
     Route: 048
     Dates: start: 20131125, end: 20131202
  3. FEXOFENADINE HYDROCHLORIDE [Suspect]
     Indication: PNEUMONIA PNEUMOCOCCAL
     Dosage: UNK
     Route: 048
     Dates: start: 20131125, end: 20131202
  4. NEORAL [Concomitant]
     Indication: PSORIASIS
     Dosage: 50 MG, 2X/DAY
     Route: 048
  5. MUCOTRON [Concomitant]
     Indication: PNEUMONIA PNEUMOCOCCAL
     Dosage: UNK
     Route: 048
     Dates: start: 20131125, end: 20131202

REACTIONS (1)
  - Rhabdomyolysis [Recovered/Resolved]
